FAERS Safety Report 14872051 (Version 2)
Quarter: 2018Q4

REPORT INFORMATION
  Report Type: Spontaneous
  Country: FR (occurrence: FR)
  Receive Date: 20180509
  Receipt Date: 20181008
  Transmission Date: 20190204
  Serious: Yes (Hospitalization)
  Sender: FDA-Public Use
  Company Number: FR-ROCHE-2081150

PATIENT
  Age: 2 Year
  Sex: Male

DRUGS (39)
  1. CELLCEPT [Suspect]
     Active Substance: MYCOPHENOLATE MOFETIL\MYCOPHENOLATE MOFETIL HYDROCHLORIDE
     Indication: DIARRHOEA
     Route: 065
  2. AZATHIOPRINE. [Suspect]
     Active Substance: AZATHIOPRINE
     Indication: DIARRHOEA
     Route: 065
  3. INOLIMOMAB [Suspect]
     Active Substance: INOLIMOMAB
     Indication: DIARRHOEA
  4. SIROLIMUS. [Suspect]
     Active Substance: SIROLIMUS
     Indication: GRAFT VERSUS HOST DISEASE IN GASTROINTESTINAL TRACT
  5. TACROLIMUS. [Suspect]
     Active Substance: TACROLIMUS
     Indication: GRAFT VERSUS HOST DISEASE IN GASTROINTESTINAL TRACT
  6. CELLCEPT [Suspect]
     Active Substance: MYCOPHENOLATE MOFETIL\MYCOPHENOLATE MOFETIL HYDROCHLORIDE
     Indication: ACUTE GRAFT VERSUS HOST DISEASE
  7. SIROLIMUS. [Suspect]
     Active Substance: SIROLIMUS
     Indication: DIARRHOEA
     Route: 065
  8. INFLIXIMAB [Suspect]
     Active Substance: INFLIXIMAB
     Indication: ABDOMINAL PAIN
  9. INFLIXIMAB [Suspect]
     Active Substance: INFLIXIMAB
     Indication: VOMITING
  10. CELLCEPT [Suspect]
     Active Substance: MYCOPHENOLATE MOFETIL\MYCOPHENOLATE MOFETIL HYDROCHLORIDE
     Indication: ABDOMINAL PAIN
  11. ETANERCEPT [Suspect]
     Active Substance: ETANERCEPT
     Indication: ABDOMINAL PAIN
  12. AZATHIOPRINE. [Suspect]
     Active Substance: AZATHIOPRINE
     Indication: GRAFT VERSUS HOST DISEASE IN GASTROINTESTINAL TRACT
  13. AZATHIOPRINE. [Suspect]
     Active Substance: AZATHIOPRINE
     Indication: ACUTE GRAFT VERSUS HOST DISEASE
  14. SIROLIMUS. [Suspect]
     Active Substance: SIROLIMUS
     Indication: ABDOMINAL PAIN
  15. INFLIXIMAB [Suspect]
     Active Substance: INFLIXIMAB
     Indication: ACUTE GRAFT VERSUS HOST DISEASE
     Route: 065
  16. ETANERCEPT [Suspect]
     Active Substance: ETANERCEPT
     Indication: VOMITING
     Route: 065
  17. SIROLIMUS. [Suspect]
     Active Substance: SIROLIMUS
     Indication: ACUTE GRAFT VERSUS HOST DISEASE
  18. TACROLIMUS. [Suspect]
     Active Substance: TACROLIMUS
     Indication: VOMITING
  19. TACROLIMUS. [Suspect]
     Active Substance: TACROLIMUS
     Indication: ABDOMINAL PAIN
  20. CYCLOSPORINE. [Concomitant]
     Active Substance: CYCLOSPORINE
     Indication: GRAFT VERSUS HOST DISEASE IN GASTROINTESTINAL TRACT
     Route: 065
  21. CELLCEPT [Suspect]
     Active Substance: MYCOPHENOLATE MOFETIL\MYCOPHENOLATE MOFETIL HYDROCHLORIDE
     Indication: VOMITING
  22. CELLCEPT [Suspect]
     Active Substance: MYCOPHENOLATE MOFETIL\MYCOPHENOLATE MOFETIL HYDROCHLORIDE
     Indication: GRAFT VERSUS HOST DISEASE IN GASTROINTESTINAL TRACT
  23. ETANERCEPT [Suspect]
     Active Substance: ETANERCEPT
     Indication: ACUTE GRAFT VERSUS HOST DISEASE
  24. AZATHIOPRINE. [Suspect]
     Active Substance: AZATHIOPRINE
     Indication: ABDOMINAL PAIN
  25. INOLIMOMAB [Suspect]
     Active Substance: INOLIMOMAB
     Indication: GRAFT VERSUS HOST DISEASE IN GASTROINTESTINAL TRACT
     Route: 065
  26. INOLIMOMAB [Suspect]
     Active Substance: INOLIMOMAB
     Indication: ABDOMINAL PAIN
  27. INFLIXIMAB [Suspect]
     Active Substance: INFLIXIMAB
     Indication: DIARRHOEA
  28. TACROLIMUS. [Suspect]
     Active Substance: TACROLIMUS
     Indication: ACUTE GRAFT VERSUS HOST DISEASE
     Route: 065
  29. METHOTREXATE. [Concomitant]
     Active Substance: METHOTREXATE
     Indication: GRAFT VERSUS HOST DISEASE IN GASTROINTESTINAL TRACT
     Route: 065
  30. ETANERCEPT [Suspect]
     Active Substance: ETANERCEPT
     Indication: GRAFT VERSUS HOST DISEASE IN GASTROINTESTINAL TRACT
  31. INOLIMOMAB [Suspect]
     Active Substance: INOLIMOMAB
     Indication: ACUTE GRAFT VERSUS HOST DISEASE
  32. TACROLIMUS. [Suspect]
     Active Substance: TACROLIMUS
     Indication: DIARRHOEA
  33. ETANERCEPT [Suspect]
     Active Substance: ETANERCEPT
     Indication: DIARRHOEA
  34. AZATHIOPRINE. [Suspect]
     Active Substance: AZATHIOPRINE
     Indication: VOMITING
  35. SIROLIMUS. [Suspect]
     Active Substance: SIROLIMUS
     Indication: VOMITING
  36. ENVARSUS XR [Suspect]
     Active Substance: TACROLIMUS
     Indication: DIARRHOEA
     Dosage: PROLONGED RELEASED TABLET
     Route: 048
  37. ENVARSUS XR [Suspect]
     Active Substance: TACROLIMUS
     Indication: GRAFT VERSUS HOST DISEASE IN GASTROINTESTINAL TRACT
  38. INOLIMOMAB [Suspect]
     Active Substance: INOLIMOMAB
     Indication: VOMITING
  39. INFLIXIMAB [Suspect]
     Active Substance: INFLIXIMAB
     Indication: GRAFT VERSUS HOST DISEASE IN GASTROINTESTINAL TRACT

REACTIONS (2)
  - Chronic graft versus host disease in intestine [Recovered/Resolved]
  - Drug ineffective [Unknown]
